FAERS Safety Report 5454874-6 (Version None)
Quarter: 2007Q3

REPORT INFORMATION
  Report Type: 
  Country: None (occurrence: None)
  Receive Date: 20070917
  Receipt Date: 20070904
  Transmission Date: 20080115
  Serious: Yes (Hospitalization)
  Sender: FDA-Public Use
  Company Number: US-GENENTECH-247385

PATIENT
  Sex: Male

DRUGS (4)
  1. BEVACIZUMAB [Suspect]
     Indication: ANAPLASTIC ASTROCYTOMA
     Dosage: 10 MG/KG, UNK
     Route: 042
     Dates: start: 20070611
  2. CPT-11 [Suspect]
     Indication: ANAPLASTIC ASTROCYTOMA
     Dosage: 250 MG/M2, Q2W
     Route: 042
     Dates: start: 20070625
  3. AMLODIPINE [Suspect]
     Indication: DRUG USE FOR UNKNOWN INDICATION
  4. KEPPRA [Suspect]
     Indication: DRUG USE FOR UNKNOWN INDICATION

REACTIONS (1)
  - LIPASE INCREASED [None]
